FAERS Safety Report 24415325 (Version 1)
Quarter: 2024Q4

REPORT INFORMATION
  Report Type: Spontaneous
  Country: AU (occurrence: AU)
  Receive Date: 20241009
  Receipt Date: 20241009
  Transmission Date: 20250115
  Serious: Yes (Other)
  Sender: IPSEN
  Company Number: AU-IPSEN Group, Research and Development-2024-20192

PATIENT

DRUGS (2)
  1. BOTULINUM TOXIN TYPE A [Suspect]
     Active Substance: BOTULINUM TOXIN TYPE A
     Indication: Product used for unknown indication
     Route: 042
  2. HYALURONIC ACID [Concomitant]
     Active Substance: HYALURONIC ACID
     Route: 042

REACTIONS (4)
  - Hepatitis B [Unknown]
  - Incorrect route of product administration [Unknown]
  - Expired product administered [Unknown]
  - Intentional product misuse [Unknown]
